FAERS Safety Report 4828616-9 (Version None)
Quarter: 2005Q4

REPORT INFORMATION
  Report Type: 
  Country: None (occurrence: None)
  Receive Date: 20051115
  Receipt Date: 20050714
  Transmission Date: 20060501
  Serious: Yes (Hospitalization, Other)
  Sender: FDA-Public Use
  Company Number: US-GILEAD-2005-0008560

PATIENT
  Age: 43 Year
  Sex: Male
  Weight: 64.9 kg

DRUGS (9)
  1. TRUVADA [Suspect]
     Indication: HIV INFECTION
     Dates: start: 20050626, end: 20050701
  2. TRUVADA [Suspect]
     Dates: start: 20050608, end: 20050625
  3. TRUVADA [Suspect]
     Dates: start: 20050303, end: 20050607
  4. AMBISOME [Suspect]
     Indication: MENINGITIS CRYPTOCOCCAL
     Dates: start: 20051011, end: 20051024
  5. AMBISOME [Suspect]
     Dates: start: 20050608
  6. AMPHOTERICIN B [Suspect]
     Indication: MENINGITIS CRYPTOCOCCAL
     Dates: start: 20050520, end: 20050607
  7. ATAZANAVIR [Concomitant]
     Indication: HIV INFECTION
     Dates: start: 20050303, end: 20050519
  8. RITONAVIR [Concomitant]
     Indication: HIV INFECTION
     Dates: start: 20050303, end: 20050519
  9. EFAVIRENZ [Concomitant]
     Indication: HIV INFECTION
     Dates: start: 20050520

REACTIONS (4)
  - IMMUNE RECONSTITUTION SYNDROME [None]
  - MENINGITIS CRYPTOCOCCAL [None]
  - RENAL FAILURE ACUTE [None]
  - SELF-MEDICATION [None]
